FAERS Safety Report 23726143 (Version 3)
Quarter: 2024Q2

REPORT INFORMATION
  Report Type: Spontaneous
  Country: BR (occurrence: BR)
  Receive Date: 20240410
  Receipt Date: 20240420
  Transmission Date: 20240716
  Serious: Yes (Other)
  Sender: FDA-Public Use
  Company Number: BR-BoehringerIngelheim-2024-BI-019982

PATIENT
  Age: 82 Year
  Sex: Female
  Weight: 52 kg

DRUGS (2)
  1. PRADAXA [Suspect]
     Active Substance: DABIGATRAN ETEXILATE MESYLATE
     Indication: Thrombosis prophylaxis
     Dosage: SHE TAKES TWO CAPSULES A DAY, ONE IN THE MORNING AND ONE IN THE EVENING.
     Route: 048
     Dates: start: 2021, end: 2024
  2. PRADAXA [Suspect]
     Active Substance: DABIGATRAN ETEXILATE MESYLATE
     Indication: Thrombosis
     Dosage: 2 CAPSULES PER DAY, ONE IN THE MORNING AND ONE IN THE EVENING, THE CAPSULE IS OPENED AND DISSOLVES T
     Dates: start: 2024

REACTIONS (8)
  - Cerebrovascular accident [Recovered/Resolved]
  - Parkinson^s disease [Not Recovered/Not Resolved]
  - Wrong technique in product usage process [Not Recovered/Not Resolved]
  - Urinary tract infection [Recovered/Resolved]
  - Pathogen resistance [Recovered/Resolved]
  - Urinary tract infection [Recovered/Resolved]
  - Diabetes mellitus [Unknown]
  - Fatigue [Unknown]

NARRATIVE: CASE EVENT DATE: 20230101
